FAERS Safety Report 9842068 (Version 1)
Quarter: 2013Q4

REPORT INFORMATION
  Report Type: Spontaneous
  Country: US (occurrence: None)
  Receive Date: 20131219
  Receipt Date: 20131219
  Transmission Date: 20140711
  Serious: Yes (Other)
  Sender: FDA-Public Use
  Company Number: 163-20785-13054761

PATIENT
  Age: 46 Year
  Sex: Female

DRUGS (2)
  1. THALOMID (THALIDOMIDE) (50 MILLIGRAM, CAPSULES) [Suspect]
     Indication: MYELOFIBROSIS
     Dosage: 50 MG, 1 IN 1 D, PO
     Route: 048
     Dates: start: 201104, end: 2011
  2. IRON (IRON) (INJECTION FOR INFUSION) [Concomitant]

REACTIONS (1)
  - Drug ineffective [None]
